FAERS Safety Report 5418678-2 (Version None)
Quarter: 2007Q3

REPORT INFORMATION
  Report Type: 
  Country: None (occurrence: None)
  Receive Date: 20070817
  Receipt Date: 20070807
  Transmission Date: 20080115
  Serious: Yes (Other)
  Sender: FDA-Public Use
  Company Number: CL-PFIZER INC-2007065858

PATIENT
  Age: 85 Year
  Sex: Female

DRUGS (1)
  1. CELECOXIB [Suspect]
     Indication: FALL
     Route: 048

REACTIONS (1)
  - PLEURAL EFFUSION [None]
